FAERS Safety Report 13984178 (Version 2)
Quarter: 2018Q1

REPORT INFORMATION
  Report Type: Spontaneous
  Country: CA (occurrence: CA)
  Receive Date: 20170918
  Receipt Date: 20180205
  Transmission Date: 20180508
  Serious: Yes (Other)
  Sender: FDA-Public Use
  Company Number: CA-SA-2017SA166692

PATIENT
  Sex: Female

DRUGS (13)
  1. ANAKINRA [Suspect]
     Active Substance: ANAKINRA
     Route: 065
  2. ENBREL [Suspect]
     Active Substance: ETANERCEPT
     Indication: RHEUMATOID ARTHRITIS
     Route: 065
  3. REMICADE [Suspect]
     Active Substance: INFLIXIMAB
     Dosage: FORM: POWDER FOR SOLUTION INTRAVENOUS
     Route: 042
  4. FENTANYL. [Concomitant]
     Active Substance: FENTANYL
     Indication: RHEUMATOID ARTHRITIS
     Route: 065
  5. ANAKINRA [Suspect]
     Active Substance: ANAKINRA
     Route: 065
     Dates: start: 1999
  6. HUMIRA [Suspect]
     Active Substance: ADALIMUMAB
     Dosage: DOSAGE FORM : SOLUTION SUBCUTANEOUS
     Route: 058
     Dates: start: 2009
  7. LEFLUNOMIDE. [Suspect]
     Active Substance: LEFLUNOMIDE
     Route: 048
     Dates: start: 1999, end: 1999
  8. ACTEMRA [Suspect]
     Active Substance: TOCILIZUMAB
     Route: 065
  9. METHOTREXATE SODIUM. [Suspect]
     Active Substance: METHOTREXATE SODIUM
     Indication: RHEUMATOID ARTHRITIS
     Route: 048
  10. METHOTREXATE SODIUM. [Suspect]
     Active Substance: METHOTREXATE SODIUM
     Indication: RHEUMATOID ARTHRITIS
     Route: 048
     Dates: start: 2016
  11. RITUXAN [Concomitant]
     Active Substance: RITUXIMAB
     Route: 065
     Dates: start: 2011
  12. FENTANYL. [Concomitant]
     Active Substance: FENTANYL
     Indication: PAIN
     Route: 065
  13. ORENCIA [Suspect]
     Active Substance: ABATACEPT
     Route: 065
     Dates: start: 2010

REACTIONS (9)
  - Osteomyelitis [Unknown]
  - Liver function test increased [Unknown]
  - Rheumatoid arthritis [Unknown]
  - Infection [Unknown]
  - Sensitivity to weather change [Unknown]
  - Drug ineffective [Unknown]
  - Drug effect decreased [Unknown]
  - Loss of personal independence in daily activities [Unknown]
  - Dyspnoea [Unknown]
